FAERS Safety Report 10025918 (Version 1)
Quarter: 2014Q1

REPORT INFORMATION
  Report Type: Spontaneous
  Country: BR (occurrence: BR)
  Receive Date: 20140320
  Receipt Date: 20140320
  Transmission Date: 20141002
  Serious: Yes (Other)
  Sender: FDA-Public Use
  Company Number: BR-ASTRAZENECA-2014SE18388

PATIENT
  Age: 579 Month
  Sex: Female
  Weight: 58 kg

DRUGS (2)
  1. ALENIA [Suspect]
     Indication: ASTHMA
     Dosage: UNKNOWN DOSE DAILY
     Route: 055
     Dates: start: 2013
  2. NEXIUM [Suspect]
     Indication: GASTROOESOPHAGEAL REFLUX DISEASE
     Route: 048
     Dates: start: 2013

REACTIONS (2)
  - Sinusitis [Not Recovered/Not Resolved]
  - Polyp [Not Recovered/Not Resolved]
